FAERS Safety Report 8990206 (Version 1)
Quarter: 2012Q4

REPORT INFORMATION
  Report Type: 
  Country: GB (occurrence: GB)
  Receive Date: 20121228
  Receipt Date: 20121228
  Transmission Date: 20130627
  Serious: Yes (Other)
  Sender: FDA-Public Use
  Company Number: GB-WATSON-2012-22842

PATIENT
  Age: 44 Year
  Sex: Male
  Weight: 93 kg

DRUGS (10)
  1. MIRTAZAPINE (UNKNOWN) [Suspect]
     Indication: DEPRESSION
     Dosage: 30mg
     Route: 048
     Dates: start: 20121024, end: 20121121
  2. ISOSORBIDE MONONITRATE [Concomitant]
     Indication: PRODUCT USED FOR UNKNOWN INDICATION
     Dosage: 30 mg, bid   Morning and afternoon. All of the above medicine have been taken for more than 6 months
     Route: 065
  3. LANSOPRAZOLE [Concomitant]
     Indication: PRODUCT USED FOR UNKNOWN INDICATION
     Dosage: 30 mg, bid  All of the above medicine have been taken for more than 6 months.
     Route: 065
  4. THIAMINE [Concomitant]
     Indication: PRODUCT USED FOR UNKNOWN INDICATION
     Dosage: 100 mg, bid  All of the above medicine have been taken for more than 6 months.
     Route: 065
  5. METOPROLOL [Concomitant]
     Indication: PRODUCT USED FOR UNKNOWN INDICATION
     Dosage: 25 mg, tid  All of the above medicine have been taken for more than 6 months.
     Route: 065
  6. WARFARIN [Concomitant]
     Indication: PRODUCT USED FOR UNKNOWN INDICATION
     Dosage: Variable dose. All of the above medicine have been taken for more than 6 months.
     Route: 065
  7. PERINDOPRIL [Concomitant]
     Indication: PRODUCT USED FOR UNKNOWN INDICATION
     Dosage: 4 mg, daily   All of the above medicine have been taken for more than 6 months.
     Route: 065
  8. PRAVASTATIN [Concomitant]
     Indication: PRODUCT USED FOR UNKNOWN INDICATION
     Dosage: 40 mg, daily   All of the above medicine have been taken for more than 6 months.
     Route: 065
  9. PARACETAMOL [Concomitant]
     Indication: PRODUCT USED FOR UNKNOWN INDICATION
     Dosage: 500mg 1-2 four times a day if needed
     Route: 065
  10. GTN [Concomitant]
     Indication: PRODUCT USED FOR UNKNOWN INDICATION
     Dosage: 400mcg spray 1-2 puffs as needed. All of the above medicine have been taken for more than 6 months.
     Route: 065

REACTIONS (5)
  - Gait disturbance [Recovered/Resolved]
  - Cognitive disorder [Unknown]
  - Mobility decreased [Unknown]
  - Condition aggravated [Unknown]
  - Confusional state [Recovered/Resolved]
